FAERS Safety Report 5867917-2 (Version None)
Quarter: 2008Q3

REPORT INFORMATION
  Report Type: 
  Country: None (occurrence: None)
  Receive Date: 20080902
  Receipt Date: 20080901
  Transmission Date: 20090109
  Serious: Yes (Hospitalization)
  Sender: FDA-Public Use
  Company Number: US-BOEHRINGER INGELHEIM GMBH, GERMANY-2008-DE-05171GD

PATIENT
  Age: 32 Year
  Sex: Female

DRUGS (3)
  1. CLONIDINE [Suspect]
     Indication: CANCER PAIN
     Route: 037
  2. MORPHINE [Suspect]
     Indication: CANCER PAIN
     Route: 037
  3. MORPHINE [Suspect]
     Indication: PROCEDURAL PAIN
     Route: 042

REACTIONS (1)
  - DRUG INEFFECTIVE [None]
